FAERS Safety Report 7739442 (Version 2)
Quarter: 2013Q1

REPORT INFORMATION
  Report Type: Report from Study
  Country: US (occurrence: US)
  Receive Date: 20101224
  Receipt Date: 20130204
  Transmission Date: 20140127
  Serious: Yes (Hospitalization)
  Sender: FDA-Public Use
  Company Number: PHHO2010US18815

PATIENT
  Age: 73 Year
  Sex: Female
  Weight: 67.3 kg

DRUGS (12)
  1. AFINITOR [Suspect]
     Indication: ACUTE MYELOID LEUKAEMIA
     Dosage: 5 MG, QD
     Route: 048
     Dates: start: 20101129
  2. CGP 41251 [Suspect]
     Indication: ACUTE MYELOID LEUKAEMIA
     Dosage: 50 MG, BID
     Route: 048
     Dates: start: 20101130, end: 20101205
  3. HYDROXYUREA [Concomitant]
  4. ROBITUSSIN [Concomitant]
  5. ACYCLOVIR [Concomitant]
  6. BENADRYL [Concomitant]
  7. CARVEDILOL [Concomitant]
  8. CIPROFLOXACIN [Concomitant]
  9. FOLIC ACID [Concomitant]
  10. GUAIFENESIN [Concomitant]
  11. MULTIVITAMINS [Concomitant]
  12. OMEPRAZOLE [Concomitant]

REACTIONS (8)
  - Lung disorder [Unknown]
  - Dyspnoea [Unknown]
  - Pleural effusion [Unknown]
  - Tachypnoea [Unknown]
  - Chest X-ray abnormal [Unknown]
  - Hypoxia [Unknown]
  - Transfusion reaction [Unknown]
  - Flushing [Unknown]
